FAERS Safety Report 24323810 (Version 1)
Quarter: 2024Q3

REPORT INFORMATION
  Report Type: Spontaneous
  Country: GB (occurrence: GB)
  Receive Date: 20240916
  Receipt Date: 20240916
  Transmission Date: 20241016
  Serious: Yes (Other)
  Sender: MYLAN
  Company Number: None

PATIENT
  Age: 74 Year
  Sex: Male

DRUGS (4)
  1. ATORVASTATIN [Suspect]
     Active Substance: ATORVASTATIN
     Indication: Product used for unknown indication
     Dosage: 20 MILLIGRAM, QD (20MG ONCE A DAY)
     Route: 065
  2. LOSARTAN [Concomitant]
     Active Substance: LOSARTAN\LOSARTAN POTASSIUM
     Dosage: UNK
     Route: 065
  3. TAMSULOSIN [Concomitant]
     Active Substance: TAMSULOSIN
     Dosage: UNK
     Route: 065
  4. SILDENAFIL [Concomitant]
     Active Substance: SILDENAFIL
     Dosage: UNK
     Route: 065

REACTIONS (4)
  - Myalgia [Not Recovered/Not Resolved]
  - Arthralgia [Not Recovered/Not Resolved]
  - Skin irritation [Recovering/Resolving]
  - Dizziness postural [Recovered/Resolved]

NARRATIVE: CASE EVENT DATE: 20240825
